FAERS Safety Report 4602194-1 (Version None)
Quarter: 2005Q2

REPORT INFORMATION
  Report Type: 
  Country: None (occurrence: None)
  Receive Date: 20050215
  Receipt Date: 20041013
  Transmission Date: 20051028
  Serious: No
  Sender: FDA-Public Use
  Company Number: MC200400698

PATIENT
  Age: 65 Year
  Sex: Male
  Weight: 97.5 kg

DRUGS (7)
  1. ANGIOMAX [Suspect]
     Indication: CORONARY ANGIOPLASTY
     Dosage: 15 ML, BOLUS (5 MG/ML), IV BOLUS
     Route: 040
     Dates: start: 20041012, end: 20041012
  2. ANGIOMAX [Suspect]
     Dosage: 35 ML/HR (5 MG/ML), INTRAVENOUS
     Route: 042
     Dates: start: 20041012, end: 20041012
  3. SODIUM CHLORIDE [Concomitant]
  4. FENTANYL CITRATE [Concomitant]
  5. MIDAZOLAM HCL [Concomitant]
  6. CONTRAST MEDIA [Concomitant]
  7. NITROGLYCERIN ^A.L.^ (GLYCERYL TRINITRATE) [Concomitant]

REACTIONS (3)
  - ANGINA PECTORIS [None]
  - CORONARY ARTERY OCCLUSION [None]
  - MYOCARDIAL ISCHAEMIA [None]
